FAERS Safety Report 12086122 (Version 1)
Quarter: 2016Q1

REPORT INFORMATION
  Report Type: Spontaneous
  Country: US (occurrence: US)
  Receive Date: 20160217
  Receipt Date: 20160217
  Transmission Date: 20160526
  Serious: No
  Sender: FDA-Public Use
  Company Number: US-TAKEDA-2015TUS003596

PATIENT
  Age: 64 Year
  Sex: Male

DRUGS (1)
  1. PREVACID SOLUTAB [Suspect]
     Active Substance: LANSOPRAZOLE
     Indication: ULCER
     Dosage: 30 MG, BID
     Route: 065
     Dates: start: 2005

REACTIONS (1)
  - Ulcer haemorrhage [Unknown]
